FAERS Safety Report 11142657 (Version 1)
Quarter: 2015Q2

REPORT INFORMATION
  Report Type: Spontaneous
  Country: US (occurrence: None)
  Receive Date: 20150526
  Receipt Date: 20150526
  Transmission Date: 20150821
  Serious: No
  Sender: FDA-Public Use
  Company Number: None

PATIENT
  Age: 32 Year
  Sex: Female
  Weight: 65.77 kg

DRUGS (3)
  1. ACZONE [Concomitant]
     Active Substance: DAPSONE
  2. NUVARING [Suspect]
     Active Substance: ETHINYL ESTRADIOL\ETONOGESTREL
     Indication: CONTRACEPTION
     Dosage: 1 RING/MONTH VAGINAL
     Route: 067
     Dates: start: 20141001, end: 20150523
  3. ADAPALINE [Concomitant]

REACTIONS (3)
  - Vaginal discharge [None]
  - Libido decreased [None]
  - Mood swings [None]

NARRATIVE: CASE EVENT DATE: 20150523
